FAERS Safety Report 4561802-4 (Version None)
Quarter: 2005Q1

REPORT INFORMATION
  Report Type: 
  Country: None (occurrence: None)
  Receive Date: 20050125
  Receipt Date: 20050117
  Transmission Date: 20050727
  Serious: Yes (Other)
  Sender: FDA-Public Use
  Company Number: 141143USA

PATIENT
  Age: 32 Year
  Sex: Female

DRUGS (1)
  1. COPAXONE [Suspect]
     Indication: MULTIPLE SCLEROSIS

REACTIONS (2)
  - ANAPHYLACTIC SHOCK [None]
  - CARDIAC ARREST [None]
